FAERS Safety Report 8249008-9 (Version None)
Quarter: 2012Q2

REPORT INFORMATION
  Report Type: 
  Country: None (occurrence: None)
  Receive Date: 20120402
  Receipt Date: 20120321
  Transmission Date: 20120825
  Serious: Yes (Hospitalization)
  Sender: FDA-Public Use
  Company Number: US-BIOGENIDEC-2012BI010042

PATIENT
  Age: 63 Year
  Sex: Female

DRUGS (2)
  1. AVONEX [Suspect]
     Indication: MULTIPLE SCLEROSIS
     Route: 030
     Dates: start: 20090829
  2. PILLS (NOS) [Concomitant]

REACTIONS (7)
  - INTERVERTEBRAL DISC PROTRUSION [None]
  - MUSCLE SPASTICITY [None]
  - APHAGIA [None]
  - CARPAL TUNNEL SYNDROME [None]
  - APHONIA [None]
  - MOTOR DYSFUNCTION [None]
  - PARAESTHESIA [None]
